FAERS Safety Report 19533108 (Version 2)
Quarter: 2025Q3

REPORT INFORMATION
  Report Type: Spontaneous
  Country: CA (occurrence: CA)
  Receive Date: 20210713
  Receipt Date: 20250731
  Transmission Date: 20251020
  Serious: Yes (Other)
  Sender: SANOFI AVENTIS
  Company Number: CA-SA-SAC20210707001203

PATIENT
  Age: 54 Year
  Sex: Female
  Weight: 102 kg

DRUGS (5)
  1. TAXOTERE [Suspect]
     Active Substance: DOCETAXEL
     Indication: Triple positive breast cancer
     Dosage: UNK UNK, Q3W
     Route: 042
     Dates: start: 20200316, end: 20200708
  2. CARBOPLATIN [Suspect]
     Active Substance: CARBOPLATIN
     Indication: Triple positive breast cancer
     Dosage: UNK, Q3W
     Route: 042
     Dates: start: 20200316, end: 20200708
  3. TRASTUZUMAB [Suspect]
     Active Substance: TRASTUZUMAB
     Indication: Triple positive breast cancer
     Dosage: UNK, Q3W
     Route: 041
     Dates: start: 20200316
  4. CETIRIZINE [Concomitant]
     Active Substance: CETIRIZINE HYDROCHLORIDE
     Indication: Rhinorrhoea
  5. PEGFILGRASTIM [Concomitant]
     Active Substance: PEGFILGRASTIM
     Dosage: UNK UNK, Q3W (2 DAYS AFTER EACH CHEMOTHERAPY)

REACTIONS (12)
  - Thrombosis [Not Recovered/Not Resolved]
  - Blood glucose increased [Unknown]
  - Fall [Recovered/Resolved]
  - Heart rate increased [Not Recovered/Not Resolved]
  - Peripheral swelling [Recovering/Resolving]
  - Seasonal allergy [Not Recovered/Not Resolved]
  - Weight fluctuation [Unknown]
  - White blood cell count increased [Unknown]
  - Contusion [Recovering/Resolving]
  - Blood creatinine increased [Recovered/Resolved]
  - Diarrhoea [Recovering/Resolving]
  - Dyspnoea [Not Recovered/Not Resolved]

NARRATIVE: CASE EVENT DATE: 20200513
